FAERS Safety Report 15939935 (Version 1)
Quarter: 2019Q1

REPORT INFORMATION
  Report Type: Spontaneous
  Country: US (occurrence: US)
  Receive Date: 20190208
  Receipt Date: 20190208
  Transmission Date: 20190417
  Serious: No
  Sender: FDA-Public Use
  Company Number: US-SHIRE-US201904228

PATIENT
  Age: 56 Year
  Sex: Female

DRUGS (1)
  1. NATPARA (PARATHYROID HORMONE) [Suspect]
     Active Substance: PARATHYROID HORMONE
     Indication: HYPOPARATHYROIDISM
     Dosage: 100 MICROGRAM/KILOGRAM, 1X/DAY:QD
     Route: 058
     Dates: start: 20160801

REACTIONS (4)
  - Amnesia [Not Recovered/Not Resolved]
  - Fatigue [Unknown]
  - Hypoglycaemia [Unknown]
  - Depressed mood [Unknown]

NARRATIVE: CASE EVENT DATE: 20180801
